FAERS Safety Report 8770988 (Version 1)
Quarter: 2012Q4

REPORT INFORMATION
  Report Type: 
  Country: FR (occurrence: FR)
  Receive Date: 20120906
  Receipt Date: 20120906
  Transmission Date: 20130627
  Serious: Yes (Hospitalization)
  Sender: FDA-Public Use
  Company Number: FR-PFIZER INC-2012216359

PATIENT
  Age: 88 Year
  Sex: Female

DRUGS (5)
  1. TRIATEC [Suspect]
     Dosage: UNK
     Route: 048
     Dates: end: 201207
  2. DEROXAT [Suspect]
     Dosage: UNK
     Route: 048
     Dates: end: 201207
  3. KARDEGIC [Concomitant]
     Dosage: UNK
  4. INEXIUM [Concomitant]
     Dosage: UNK
  5. CACIT D3 [Concomitant]
     Dosage: UNK

REACTIONS (3)
  - Myoclonus [Recovered/Resolved]
  - Encephalopathy [Unknown]
  - Dementia [Unknown]
